FAERS Safety Report 10357337 (Version 1)
Quarter: 2014Q3

REPORT INFORMATION
  Report Type: Spontaneous
  Country: FR (occurrence: FR)
  Receive Date: 20140801
  Receipt Date: 20140801
  Transmission Date: 20150326
  Serious: Yes (Hospitalization)
  Sender: FDA-Public Use
  Company Number: FR-SA-2014SA102537

PATIENT
  Age: 41 Year
  Sex: Female

DRUGS (11)
  1. EFFERALGAN CODEINE [Suspect]
     Active Substance: ACETAMINOPHEN\CODEINE PHOSPHATE
     Route: 048
     Dates: end: 20140625
  2. OLMESARTAN [Concomitant]
     Active Substance: OLMESARTAN
  3. ZOLPIDEM [Suspect]
     Active Substance: ZOLPIDEM\ZOLPIDEM TARTRATE
     Route: 048
     Dates: end: 20140625
  4. BROMAZEPAM [Suspect]
     Active Substance: BROMAZEPAM
     Route: 048
  5. AMLOR [Concomitant]
     Active Substance: AMLODIPINE BESYLATE
  6. TRAMADOL HYDROCHLORIDE. [Suspect]
     Active Substance: TRAMADOL HYDROCHLORIDE
     Route: 048
     Dates: end: 20140625
  7. TRAMADOL HYDROCHLORIDE. [Suspect]
     Active Substance: TRAMADOL HYDROCHLORIDE
     Route: 048
     Dates: start: 20140626, end: 20140626
  8. MYOLASTAN [Suspect]
     Active Substance: TETRAZEPAM
     Route: 048
     Dates: start: 20140626, end: 20140626
  9. EFFERALGAN CODEINE [Suspect]
     Active Substance: ACETAMINOPHEN\CODEINE PHOSPHATE
     Route: 048
     Dates: start: 20140626, end: 20140626
  10. MYOLASTAN [Suspect]
     Active Substance: TETRAZEPAM
     Route: 048
     Dates: end: 20140625
  11. ZOLPIDEM [Suspect]
     Active Substance: ZOLPIDEM\ZOLPIDEM TARTRATE
     Route: 048
     Dates: start: 20140626, end: 20140626

REACTIONS (4)
  - Toxicity to various agents [Recovered/Resolved]
  - Intentional overdose [Unknown]
  - Drug abuse [Unknown]
  - Somnolence [Recovered/Resolved]

NARRATIVE: CASE EVENT DATE: 20140627
